FAERS Safety Report 6697312-8 (Version None)
Quarter: 2010Q2

REPORT INFORMATION
  Report Type: 
  Country: None (occurrence: None)
  Receive Date: 20100426
  Receipt Date: 20100416
  Transmission Date: 20101027
  Serious: Yes (Other)
  Sender: FDA-Public Use
  Company Number: JP-ASTRAZENECA-2010SE17378

PATIENT
  Age: 74 Year
  Sex: Male

DRUGS (1)
  1. AMIAS [Suspect]
     Indication: DRUG USE FOR UNKNOWN INDICATION
     Route: 048

REACTIONS (2)
  - BLOOD AMYLASE INCREASED [None]
  - LYMPHOPENIA [None]
